FAERS Safety Report 21939407 (Version 1)
Quarter: 2023Q1

REPORT INFORMATION
  Report Type: Report from Study
  Country: US (occurrence: US)
  Receive Date: 20230201
  Receipt Date: 20230201
  Transmission Date: 20230417
  Serious: No
  Sender: FDA-Public Use
  Company Number: US-EXELIXIS-CABO-21047293

PATIENT
  Sex: Male

DRUGS (6)
  1. CABOMETYX [Suspect]
     Active Substance: CABOZANTINIB S-MALATE
     Indication: Renal cancer
     Dosage: 40 MG, QD
     Route: 048
     Dates: start: 202111
  2. OPDIVO [Concomitant]
     Active Substance: NIVOLUMAB
     Indication: Renal cancer
  3. MIRALAX [Concomitant]
     Active Substance: POLYETHYLENE GLYCOL 3350
  4. VITAMINS [Concomitant]
     Active Substance: VITAMINS
  5. ACETAMINOPHEN\OXYCODONE HYDROCHLORIDE [Concomitant]
     Active Substance: ACETAMINOPHEN\OXYCODONE HYDROCHLORIDE
  6. PROBIOTICS NOS [Concomitant]
     Active Substance: PROBIOTICS NOS

REACTIONS (4)
  - Nail pigmentation [Not Recovered/Not Resolved]
  - Onychalgia [Recovering/Resolving]
  - Tongue discomfort [Recovering/Resolving]
  - Dysphonia [Not Recovered/Not Resolved]
